FAERS Safety Report 7010229-4 (Version None)
Quarter: 2010Q3

REPORT INFORMATION
  Report Type: 
  Country: None (occurrence: None)
  Receive Date: 20100923
  Receipt Date: 20100914
  Transmission Date: 20110219
  Serious: Yes (Death)
  Sender: FDA-Public Use
  Company Number: GXKR2010KR10423

PATIENT
  Age: 54 Year
  Sex: Male

DRUGS (4)
  1. ACETYLSALICYLIC ACID SRT [Suspect]
     Indication: THROMBOSIS PROPHYLAXIS
     Dosage: 100 MG, QD
     Route: 065
     Dates: start: 20030101
  2. CILOSTAZOL [Suspect]
     Indication: THROMBOSIS PROPHYLAXIS
     Dosage: 100 MG, BID
     Route: 065
     Dates: start: 20080701
  3. CLOPIDOGREL BISULFATE [Suspect]
     Indication: THROMBOSIS PROPHYLAXIS
     Dosage: 75 MG, QD
     Route: 065
     Dates: start: 20030101
  4. WARFARIN SODIUM [Suspect]
     Indication: THROMBOSIS PROPHYLAXIS
     Route: 065

REACTIONS (6)
  - DISSEMINATED INTRAVASCULAR COAGULATION [None]
  - FLANK PAIN [None]
  - METABOLIC ACIDOSIS [None]
  - MULTI-ORGAN FAILURE [None]
  - NEPHRECTOMY [None]
  - RENAL HAEMORRHAGE [None]
